FAERS Safety Report 15988794 (Version 1)
Quarter: 2019Q1

REPORT INFORMATION
  Report Type: Spontaneous
  Country: US (occurrence: US)
  Receive Date: 20190221
  Receipt Date: 20190221
  Transmission Date: 20190418
  Serious: No
  Sender: FDA-Public Use
  Company Number: US-GLAXOSMITHKLINE-US2019025562

PATIENT
  Sex: Male

DRUGS (2)
  1. ABREVA [Suspect]
     Active Substance: DOCOSANOL
     Indication: ORAL HERPES
     Dosage: UNK(3 DAYS)
  2. ABREVA [Suspect]
     Active Substance: DOCOSANOL
     Dosage: UNK,(3 DAYS)

REACTIONS (2)
  - Expired product administered [Unknown]
  - Incorrect product administration duration [Unknown]
